FAERS Safety Report 5024420-X (Version None)
Quarter: 2006Q2

REPORT INFORMATION
  Report Type: 
  Country: None (occurrence: None)
  Receive Date: 20060613
  Receipt Date: 20051205
  Transmission Date: 20061013
  Serious: Yes (Life-Threatening, Hospitalization)
  Sender: FDA-Public Use
  Company Number: PHBS2005JP18029

PATIENT
  Age: 49 Year
  Sex: Male
  Weight: 58 kg

DRUGS (8)
  1. VOLTAREN [Suspect]
     Indication: ARTHRALGIA
     Dosage: UNK, UNK
     Route: 048
     Dates: start: 20050401, end: 20050401
  2. VOLTAREN [Suspect]
     Dosage: 75 MG/DAY
     Route: 048
     Dates: start: 20050520, end: 20050717
  3. VOLTAREN [Suspect]
     Dosage: 75 MG/DAY
     Route: 048
     Dates: start: 20051118, end: 20051209
  4. AMARYL [Concomitant]
     Indication: DIABETES MELLITUS
     Dosage: 6 MG/DAY
     Route: 048
     Dates: start: 20021008
  5. ALLOPURINOL [Concomitant]
     Indication: HYPERURICAEMIA
     Dosage: 200 MG/DAY
     Route: 048
     Dates: start: 19970826
  6. BUFORMIN HYDROCHLORIDE [Concomitant]
     Indication: DIABETES MELLITUS
     Dosage: 100 MG/DAY
     Route: 048
     Dates: start: 20000125
  7. BUTENAFINE HYDROCHLORIDE [Concomitant]
     Indication: TINEA INFECTION
     Route: 061
     Dates: start: 19970908
  8. KERATINAMIN [Concomitant]
     Indication: HYPERKERATOSIS
     Route: 061
     Dates: start: 19990304

REACTIONS (6)
  - ARTERIOSPASM CORONARY [None]
  - CHEST DISCOMFORT [None]
  - CHEST PAIN [None]
  - ELECTROCARDIOGRAM Q WAVE ABNORMAL [None]
  - ELECTROCARDIOGRAM ST SEGMENT ELEVATION [None]
  - MYOCARDIAL INFARCTION [None]
